FAERS Safety Report 12419529 (Version 1)
Quarter: 2016Q2

REPORT INFORMATION
  Report Type: Spontaneous
  Country: GB (occurrence: GB)
  Receive Date: 20160531
  Receipt Date: 20160531
  Transmission Date: 20160815
  Serious: Yes (Life-Threatening, Hospitalization)
  Sender: FDA-Public Use
  Company Number: GB-PFIZER INC-2010044221

PATIENT
  Age: 17 Year
  Sex: Male
  Weight: 64 kg

DRUGS (2)
  1. IBUPROFEN. [Suspect]
     Active Substance: IBUPROFEN
     Dosage: UNK
     Route: 048
  2. DOXEPIN HCL [Suspect]
     Active Substance: DOXEPIN HYDROCHLORIDE
     Dosage: UNK
     Route: 048

REACTIONS (12)
  - Muscle injury [Recovering/Resolving]
  - Overdose [Recovered/Resolved]
  - Respiratory failure [Recovered/Resolved with Sequelae]
  - Hypokalaemia [Recovering/Resolving]
  - Myoglobinuria [Unknown]
  - Renal failure [Recovered/Resolved]
  - Liver injury [Unknown]
  - Metabolic acidosis [Recovered/Resolved]
  - Ventricular tachycardia [Recovered/Resolved]
  - Coma [Recovered/Resolved]
  - Hyperkalaemia [Recovered/Resolved]
  - Hyperthermia [Recovered/Resolved]
